FAERS Safety Report 21376395 (Version 2)
Quarter: 2022Q3

REPORT INFORMATION
  Report Type: Spontaneous
  Country: US (occurrence: US)
  Receive Date: 20220926
  Receipt Date: 20220928
  Transmission Date: 20221026
  Serious: No
  Sender: FDA-Public Use
  Company Number: US-PFIZER INC-202201182220

PATIENT
  Age: 69 Year
  Sex: Male
  Weight: 78.47 kg

DRUGS (3)
  1. PAXLOVID [Suspect]
     Active Substance: NIRMATRELVIR\RITONAVIR
     Indication: Severe acute respiratory syndrome
     Dosage: 2 WHITE PILLS AND A 1 BLUE PILL ONCE IN THE MORNING AND ONCE AT NIGHT
     Dates: start: 20220921
  2. PAXLOVID [Suspect]
     Active Substance: NIRMATRELVIR\RITONAVIR
     Dosage: 3 DF (TWO WHITE PILLS AND ONE PINK PILL)
     Dates: start: 202209
  3. ATORVASTATIN CALCIUM [Concomitant]
     Active Substance: ATORVASTATIN CALCIUM
     Dosage: 80 MG
     Dates: end: 20220921

REACTIONS (2)
  - Nausea [Unknown]
  - Off label use [Unknown]

NARRATIVE: CASE EVENT DATE: 20220921
